FAERS Safety Report 14318313 (Version 2)
Quarter: 2023Q2

REPORT INFORMATION
  Report Type: Spontaneous
  Country: SE (occurrence: SE)
  Receive Date: 20171222
  Receipt Date: 20230526
  Transmission Date: 20230721
  Serious: Yes (Death, Other)
  Sender: FDA-Public Use
  Company Number: SE-MEDA-M-EU-2010090116

PATIENT
  Age: 27 Year
  Sex: Male

DRUGS (8)
  1. MORPHINE [Suspect]
     Active Substance: MORPHINE
     Indication: Product used for unknown indication
     Dosage: UNK
     Route: 065
  2. CODEINE [Interacting]
     Active Substance: CODEINE
     Indication: Product used for unknown indication
     Dosage: UNK
     Route: 065
  3. OXYBATE [Interacting]
     Active Substance: OXYBATE
     Indication: Product used for unknown indication
     Dosage: UNK
     Route: 065
  4. FLUNITRAZEPAM [Interacting]
     Active Substance: FLUNITRAZEPAM
     Indication: Product used for unknown indication
     Dosage: UNK
     Route: 065
  5. HEROIN [Interacting]
     Active Substance: DIAMORPHINE
     Indication: Product used for unknown indication
     Dosage: UNK
     Route: 065
  6. ALCOHOL [Interacting]
     Active Substance: ALCOHOL
     Indication: Alcohol use
     Dosage: UNK
     Route: 065
  7. DRONABINOL [Interacting]
     Active Substance: DRONABINOL
     Indication: Product used for unknown indication
     Dosage: UNK
     Route: 065
  8. AMPHETAMINE [Interacting]
     Active Substance: AMPHETAMINE
     Indication: Product used for unknown indication
     Dosage: UNK
     Route: 065

REACTIONS (4)
  - Drug interaction [Fatal]
  - Overdose [Fatal]
  - Toxicity to various agents [Fatal]
  - Drug abuse [Unknown]
